FAERS Safety Report 8883638 (Version 2)
Quarter: 2012Q4

REPORT INFORMATION
  Report Type: 
  Country: BR (occurrence: BR)
  Receive Date: 20121102
  Receipt Date: 20121219
  Transmission Date: 20130627
  Serious: Yes (Death)
  Sender: FDA-Public Use
  Company Number: BR-PFIZER INC-2012105010

PATIENT
  Age: 75 Year
  Sex: Female
  Weight: 68 kg

DRUGS (7)
  1. SUTENT [Suspect]
     Indication: GASTROINTESTINAL STROMAL TUMOR
     Dosage: 37.5 mg, 1x/day
     Route: 048
     Dates: start: 20120426, end: 201206
  2. AMLODIPINE [Concomitant]
     Dosage: 5 mg, 1x/day
  3. LOSARTAN [Concomitant]
     Dosage: 50 mg, 2x/day
  4. ANCORON [Concomitant]
     Dosage: 200 mg, 2x/day
  5. RIVOTRIL [Concomitant]
     Dosage: UNK, 1x/day
  6. PONDERA [Concomitant]
     Dosage: UNK, 1x/day
  7. OMEPRAZOL [Concomitant]
     Dosage: 20 mg, 1x/day

REACTIONS (11)
  - Disease progression [Fatal]
  - Gastrointestinal stromal tumour [Fatal]
  - Weight decreased [Unknown]
  - Blister [Unknown]
  - Pain in extremity [Unknown]
  - Oral discomfort [Not Recovered/Not Resolved]
  - Dysgeusia [Unknown]
  - Blister [Unknown]
  - Walking disability [Unknown]
  - Decreased appetite [Not Recovered/Not Resolved]
  - Asthenia [Unknown]
